FAERS Safety Report 5267404-9 (Version None)
Quarter: 2007Q1

REPORT INFORMATION
  Report Type: 
  Country: None (occurrence: None)
  Receive Date: 20070316
  Receipt Date: 20070308
  Transmission Date: 20070707
  Serious: Yes (Hospitalization, Other)
  Sender: FDA-Public Use
  Company Number: US-ELI_LILLY_AND_COMPANY-US200701004790

PATIENT
  Age: 48 Year
  Sex: Male
  Weight: 111 kg

DRUGS (9)
  1. HUMATROPE [Suspect]
     Indication: GROWTH HORMONE DEFICIENCY
     Dosage: UNK, UNK
     Dates: start: 20060801
  2. HUMATROPE [Suspect]
     Dosage: 0.7 MG, EACH EVENING
     Dates: start: 20030317, end: 20031001
  3. HUMATROPE [Suspect]
     Dates: start: 20020801, end: 20030317
  4. ATENOLOL [Concomitant]
     Dosage: 50 MG, DAILY (1/D)
  5. MULTI-VITAMIN [Concomitant]
     Dosage: 1 UNK, DAILY (1/D)
  6. AMBIEN [Concomitant]
     Indication: INSOMNIA
     Dosage: 20 MG, AS NEEDED
  7. ZANAFLEX [Concomitant]
     Indication: MUSCLE SPASMS
     Dosage: UNK, AS NEEDED
  8. BACTRIM DS [Concomitant]
  9. LIPITOR [Concomitant]
     Dosage: 10 MG, DAILY (1/D)

REACTIONS (14)
  - ACUTE MYELOID LEUKAEMIA [None]
  - ANXIETY [None]
  - CYTOMEGALOVIRUS INFECTION [None]
  - DEPRESSION [None]
  - DIABETES MELLITUS NON-INSULIN-DEPENDENT [None]
  - GASTROOESOPHAGEAL REFLUX DISEASE [None]
  - GRAFT VERSUS HOST DISEASE [None]
  - HYPOGONADISM [None]
  - INJECTION SITE PAIN [None]
  - MICROALBUMINURIA [None]
  - MYELODYSPLASTIC SYNDROME [None]
  - REFRACTORY ANAEMIA [None]
  - SEXUAL DYSFUNCTION [None]
  - SPINAL FRACTURE [None]
